FAERS Safety Report 23178968 (Version 1)
Quarter: 2023Q4

REPORT INFORMATION
  Report Type: Spontaneous
  Country: CA (occurrence: CA)
  Receive Date: 20231113
  Receipt Date: 20231113
  Transmission Date: 20240109
  Serious: Yes (Life-Threatening, Other)
  Sender: FDA-Public Use
  Company Number: CA-PFIZER INC-202300361637

PATIENT
  Age: 80 Year
  Sex: Female

DRUGS (2)
  1. ERYC [Interacting]
     Active Substance: ERYTHROMYCIN
     Dosage: UNK
     Route: 048
  2. DILTIAZEM [Interacting]
     Active Substance: DILTIAZEM

REACTIONS (2)
  - Drug interaction [Recovered/Resolved]
  - Atrial fibrillation [Recovered/Resolved]
